FAERS Safety Report 22911397 (Version 3)
Quarter: 2023Q4

REPORT INFORMATION
  Report Type: Report from Study
  Country: JP (occurrence: JP)
  Receive Date: 20230906
  Receipt Date: 20231017
  Transmission Date: 20240110
  Serious: Yes (Other)
  Sender: FDA-Public Use
  Company Number: JP-TAKEDA-2022TJP064495

PATIENT
  Age: 23 Year
  Sex: Male
  Weight: 52 kg

DRUGS (6)
  1. VEDOLIZUMAB [Suspect]
     Active Substance: VEDOLIZUMAB
     Indication: Colitis ulcerative
     Dosage: 300 MILLIGRAM, Q8WEEKS
     Route: 042
     Dates: start: 20220315
  2. ASACOL [Concomitant]
     Active Substance: MESALAMINE
     Indication: Colitis ulcerative
     Dosage: 3600 MILLIGRAM
     Route: 048
     Dates: start: 20210910
  3. BIO-THREE [Concomitant]
     Active Substance: HERBALS
     Indication: Colitis ulcerative
     Dosage: 3 DOSAGE FORM
     Route: 048
     Dates: start: 20211005
  4. IMURAN [Concomitant]
     Active Substance: AZATHIOPRINE
     Indication: Colitis ulcerative
     Dosage: 100 MILLIGRAM
     Route: 048
     Dates: start: 20220711
  5. RINDERON [Concomitant]
     Indication: Colitis ulcerative
     Dosage: UNK
     Route: 065
     Dates: start: 20220329, end: 20220620
  6. PENTASA [Concomitant]
     Active Substance: MESALAMINE
     Indication: Colitis ulcerative
     Dosage: 1 DOSAGE FORM
     Route: 054
     Dates: start: 20220426

REACTIONS (5)
  - Bile duct stone [Not Recovered/Not Resolved]
  - Zinc deficiency [Recovered/Resolved]
  - Hepatic function abnormal [Not Recovered/Not Resolved]
  - Weight decreased [Recovered/Resolved]
  - Nasopharyngitis [Recovered/Resolved]

NARRATIVE: CASE EVENT DATE: 20220621
